FAERS Safety Report 14268244 (Version 1)
Quarter: 2017Q4

REPORT INFORMATION
  Report Type: Spontaneous
  Country: US (occurrence: US)
  Receive Date: 20171211
  Receipt Date: 20171211
  Transmission Date: 20180321
  Serious: Yes (Disabling, Other)
  Sender: FDA-Public Use
  Company Number: None

PATIENT
  Sex: Male
  Weight: 81 kg

DRUGS (5)
  1. DAILY MULTIVITAMIN [Concomitant]
     Active Substance: VITAMINS
  2. VALSARTIN [Concomitant]
  3. CIPROFLOXACIN. [Suspect]
     Active Substance: CIPROFLOXACIN
     Indication: DIARRHOEA
     Dosage: ?          QUANTITY:1 TABLET(S);?
     Route: 048
     Dates: start: 20171030, end: 20171105
  4. CHERRY SUPPLEMENT [Concomitant]
  5. FISH OIL [Concomitant]
     Active Substance: FISH OIL

REACTIONS (3)
  - Arthralgia [None]
  - Gait inability [None]
  - Mobility decreased [None]

NARRATIVE: CASE EVENT DATE: 20171108
